FAERS Safety Report 9419274 (Version 1)
Quarter: 2013Q3

REPORT INFORMATION
  Report Type: Spontaneous
  Country: BR (occurrence: BR)
  Receive Date: 20130723
  Receipt Date: 20130723
  Transmission Date: 20140515
  Serious: Yes (Other)
  Sender: FDA-Public Use
  Company Number: B0909773A

PATIENT
  Age: 57 Year
  Sex: Male

DRUGS (6)
  1. COMBIVIR [Suspect]
     Indication: HIV INFECTION
     Dates: start: 200808, end: 201012
  2. EFAVIRENZ [Suspect]
     Indication: HIV INFECTION
  3. TENOFOVIR [Suspect]
     Indication: HIV INFECTION
  4. LAMIVUDINE-HIV [Suspect]
     Indication: HIV INFECTION
  5. ATAZANAVIR [Suspect]
     Indication: HIV INFECTION
  6. RITONAVIR (RITONAVIR) [Suspect]
     Indication: HIV INFECTION

REACTIONS (1)
  - Porphyria non-acute [None]
